FAERS Safety Report 7413815-2 (Version None)
Quarter: 2011Q2

REPORT INFORMATION
  Report Type: 
  Country: None (occurrence: None)
  Receive Date: 20110413
  Receipt Date: 20110331
  Transmission Date: 20111010
  Serious: Yes (Hospitalization)
  Sender: FDA-Public Use
  Company Number: SE-GENENTECH-316241

PATIENT
  Age: 9 Year
  Sex: Female

DRUGS (1)
  1. MABTHERA [Suspect]
     Indication: JUVENILE ARTHRITIS
     Dosage: 410 MG, UNK
     Route: 042
     Dates: start: 20101210, end: 20101211

REACTIONS (1)
  - NEUTROPENIA [None]
